FAERS Safety Report 15768195 (Version 1)
Quarter: 2018Q4

REPORT INFORMATION
  Report Type: Other
  Country: US (occurrence: US)
  Receive Date: 20181227
  Receipt Date: 20181227
  Transmission Date: 20190205
  Serious: Yes (Other)
  Sender: FDA-Public Use
  Company Number: US-WALMART-2060637

PATIENT
  Sex: Female

DRUGS (1)
  1. EQUATE MAGNESIUM CITRATE LOW SODIUM + DYE FREE CHERRY [Suspect]
     Active Substance: MAGNESIUM CITRATE
     Indication: FREQUENT BOWEL MOVEMENTS
     Route: 048
     Dates: start: 20181203, end: 20181203

REACTIONS (2)
  - Burning sensation [Recovering/Resolving]
  - Pain [Recovering/Resolving]
